FAERS Safety Report 7487212-8 (Version None)
Quarter: 2011Q2

REPORT INFORMATION
  Report Type: 
  Country: None (occurrence: None)
  Receive Date: 20110518
  Receipt Date: 20110411
  Transmission Date: 20111010
  Serious: Yes (Hospitalization, Other)
  Sender: FDA-Public Use
  Company Number: US-BAYER-2010-003948

PATIENT
  Age: 19 Year
  Sex: Female
  Weight: 52 kg

DRUGS (4)
  1. YAZ [Suspect]
     Indication: PREMENSTRUAL SYNDROME
     Dosage: UNK
     Route: 048
     Dates: start: 20080901, end: 20090901
  2. YASMIN [Suspect]
     Indication: PRODUCT USED FOR UNKNOWN INDICATION
     Route: 048
  3. PREVACID [Concomitant]
     Indication: GASTRITIS
     Dosage: UNK
     Dates: start: 20081011
  4. PRILOSEC [Concomitant]
     Dosage: UNK
     Dates: start: 20081012

REACTIONS (4)
  - PAIN [None]
  - INJURY [None]
  - CHOLECYSTECTOMY [None]
  - CHOLECYSTITIS CHRONIC [None]
